FAERS Safety Report 10234708 (Version 1)
Quarter: 2014Q1

REPORT INFORMATION
  Report Type: Spontaneous
  Country: US (occurrence: None)
  Receive Date: 20140306
  Receipt Date: 20140306
  Transmission Date: 20141002
  Serious: Yes (Other)
  Sender: FDA-Public Use
  Company Number: 163-21880-13050118

PATIENT
  Age: 81 Year
  Sex: Male
  Weight: 61.2 kg

DRUGS (6)
  1. REVLIMID (LENALIDOMIDE) (5 MILLIGRAM, CAPSULES) [Suspect]
     Indication: PLASMA CELL MYELOMA
     Route: 048
     Dates: start: 20130205
  2. PROCHLORPERAZINE (PROCHLORPERAZINE) [Concomitant]
  3. OMEPRAZOLE (OMEPRAZOLE) [Concomitant]
  4. TRIAMTERENE AND HYDROCHLOROTHIAZIDE (DYAZIDE) [Concomitant]
  5. MIRTAZAPINE (MIRTAZAPINE) [Concomitant]
  6. HYDROXYUREA (HYDROXYCARBAMIDE) [Concomitant]

REACTIONS (2)
  - Anaemia [None]
  - Contusion [None]
